FAERS Safety Report 13004257 (Version 6)
Quarter: 2017Q1

REPORT INFORMATION
  Report Type: Report from Study
  Country: US (occurrence: US)
  Receive Date: 20161206
  Receipt Date: 20170221
  Transmission Date: 20170428
  Serious: Yes (Death, Hospitalization, Other)
  Sender: FDA-Public Use
  Company Number: US-009507513-1612USA000312

PATIENT
  Age: 52 Year
  Sex: Female

DRUGS (6)
  1. OMEPRAZOLE. [Concomitant]
     Active Substance: OMEPRAZOLE
     Dosage: UNK
  2. DECADRON [Concomitant]
     Active Substance: DEXAMETHASONE
     Dosage: UNK
     Route: 048
  3. PEMBROLIZUMAB. [Suspect]
     Active Substance: PEMBROLIZUMAB
     Indication: MALIGNANT MELANOMA
     Dosage: UNK, EVERY 3 WEEKS
     Route: 042
     Dates: start: 2016
  4. ONDANSETRON [Concomitant]
     Active Substance: ONDANSETRON
     Indication: NAUSEA
     Dosage: UNK
  5. VITAMIN B (UNSPECIFIED) [Concomitant]
     Indication: MYALGIA
     Dosage: UNK
  6. CHLORPROMAZINE. [Concomitant]
     Active Substance: CHLORPROMAZINE
     Indication: NAUSEA
     Dosage: UNK

REACTIONS (19)
  - Weight increased [Unknown]
  - Chills [Unknown]
  - Psychiatric symptom [Unknown]
  - Pain [Unknown]
  - Fatigue [Unknown]
  - Rash [Recovering/Resolving]
  - Constipation [Not Recovered/Not Resolved]
  - Burning sensation [Recovering/Resolving]
  - Peripheral swelling [Unknown]
  - Vomiting [Unknown]
  - Drug effect variable [Unknown]
  - Brain oedema [Unknown]
  - Necrosis [Unknown]
  - Abdominal distension [Unknown]
  - Muscle spasms [Unknown]
  - Malignant neoplasm progression [Fatal]
  - Hyperthyroidism [Unknown]
  - Hypoaesthesia [Unknown]
  - Pruritus [Recovering/Resolving]

NARRATIVE: CASE EVENT DATE: 2016
